FAERS Safety Report 6829519-0 (Version None)
Quarter: 2010Q3

REPORT INFORMATION
  Report Type: 
  Country: None (occurrence: None)
  Receive Date: 20100709
  Receipt Date: 20070502
  Transmission Date: 20110219
  Serious: Yes (Other)
  Sender: FDA-Public Use
  Company Number: US-PFIZER INC-2007007974

PATIENT
  Age: 48 Year
  Sex: Male
  Weight: 93.9 kg

DRUGS (4)
  1. CHANTIX [Suspect]
     Indication: SMOKING CESSATION THERAPY
  2. ACTOS [Concomitant]
     Indication: DIABETES MELLITUS
  3. LIPITOR [Concomitant]
  4. ACCUPRIL [Concomitant]

REACTIONS (1)
  - DISORIENTATION [None]
